FAERS Safety Report 5839020-9 (Version None)
Quarter: 2008Q3

REPORT INFORMATION
  Report Type: 
  Country: None (occurrence: None)
  Receive Date: 20080808
  Receipt Date: 20080806
  Transmission Date: 20090109
  Serious: Yes (Hospitalization)
  Sender: FDA-Public Use
  Company Number: US-BOEHRINGER INGELHEIM GMBH, GERMANY-2008-BP-09788BP

PATIENT
  Sex: Male

DRUGS (8)
  1. SPIRIVA [Suspect]
     Indication: CHRONIC OBSTRUCTIVE PULMONARY DISEASE
     Route: 055
     Dates: start: 20040101
  2. ADVAIR DISKUS 100/50 [Concomitant]
  3. NEBULIZER RX [Concomitant]
  4. INHALERS [Concomitant]
  5. HEART MEDICINE [Concomitant]
  6. B/P MEDS [Concomitant]
  7. CHOLESTEROL MEDS [Concomitant]
  8. ANTIBIOTICS [Concomitant]

REACTIONS (2)
  - DYSPNOEA [None]
  - PANCREATITIS [None]
